FAERS Safety Report 22274973 (Version 1)
Quarter: 2023Q2

REPORT INFORMATION
  Report Type: Spontaneous
  Country: FR (occurrence: FR)
  Receive Date: 20230502
  Receipt Date: 20230502
  Transmission Date: 20230722
  Serious: Yes (Other)
  Sender: FDA-Public Use
  Company Number: FR-ELI_LILLY_AND_COMPANY-FR202304013494

PATIENT
  Age: 56 Year
  Sex: Female
  Weight: 98 kg

DRUGS (10)
  1. TALTZ [Suspect]
     Active Substance: IXEKIZUMAB
     Indication: Psoriatic arthropathy
     Dosage: 80 MG, MONTHLY (1/M)
     Route: 058
     Dates: start: 20210610
  2. DULOXETINE [Concomitant]
     Active Substance: DULOXETINE
     Indication: Fibromyalgia
     Dosage: UNK, UNKNOWN
     Route: 065
     Dates: start: 202011
  3. DULOXETINE [Concomitant]
     Active Substance: DULOXETINE
     Indication: Psoriatic arthropathy
  4. MORPHINE SULFATE [Concomitant]
     Active Substance: MORPHINE SULFATE
     Indication: Fibromyalgia
     Dosage: UNK
     Dates: start: 20210430
  5. SKENAN [Concomitant]
     Active Substance: MORPHINE SULFATE
     Indication: Fibromyalgia
     Dosage: UNK
     Dates: start: 20210330
  6. RABEPRAZOLE SODIUM [Concomitant]
     Active Substance: RABEPRAZOLE SODIUM
     Indication: Prophylaxis
     Dosage: UNK
     Dates: start: 2016
  7. CARBOMER [Concomitant]
     Active Substance: CARBOMER
     Indication: Seasonal allergy
     Dosage: UNK
     Dates: start: 20210201
  8. HYALURONATE SODIUM [Concomitant]
     Active Substance: HYALURONATE SODIUM
     Indication: Seasonal allergy
     Dosage: UNK
     Dates: start: 20210209
  9. ACUPAN [Concomitant]
     Active Substance: NEFOPAM HYDROCHLORIDE
     Indication: Fibromyalgia
     Dosage: UNK
     Dates: start: 2016
  10. LEVOTHYROXINE [Concomitant]
     Active Substance: LEVOTHYROXINE
     Indication: Hyperthyroidism
     Dosage: UNK
     Dates: start: 2020

REACTIONS (3)
  - Furuncle [Not Recovered/Not Resolved]
  - Skin lesion [Not Recovered/Not Resolved]
  - Injection site reaction [Unknown]

NARRATIVE: CASE EVENT DATE: 20210801
